FAERS Safety Report 25599600 (Version 2)
Quarter: 2025Q3

REPORT INFORMATION
  Report Type: Spontaneous
  Country: US (occurrence: US)
  Receive Date: 20250724
  Receipt Date: 20250807
  Transmission Date: 20251020
  Serious: No
  Sender: ELI LILLY AND COMPANY
  Company Number: US-ELI_LILLY_AND_COMPANY-US202507020524

PATIENT
  Age: 46 Year
  Sex: Female

DRUGS (1)
  1. VERZENIO [Suspect]
     Active Substance: ABEMACICLIB
     Indication: Breast cancer female
     Dosage: 150 MG, BID
     Route: 048
     Dates: start: 20250620

REACTIONS (14)
  - Taste disorder [Unknown]
  - Oral pain [Unknown]
  - Flatulence [Unknown]
  - Abdominal distension [Unknown]
  - Polydipsia [Unknown]
  - Headache [Unknown]
  - Abdominal pain [Unknown]
  - Weight decreased [Unknown]
  - Diarrhoea [Unknown]
  - Nausea [Unknown]
  - Fatigue [Unknown]
  - Dry mouth [Unknown]
  - Decreased appetite [Unknown]
  - Stomatitis [Unknown]
